FAERS Safety Report 6140465-0 (Version None)
Quarter: 2009Q1

REPORT INFORMATION
  Report Type: 
  Country: None (occurrence: None)
  Receive Date: 20090331
  Receipt Date: 20090326
  Transmission Date: 20090719
  Serious: Yes (Other)
  Sender: FDA-Public Use
  Company Number: 189429USA

PATIENT
  Age: 24 Year
  Sex: Female
  Weight: 72.5755 kg

DRUGS (1)
  1. LEVONORGESTREL [Suspect]
     Indication: CONTRACEPTION
     Dosage: 1.5 MG (0.75 MG, 2 IN 1 D), ORAL
     Route: 048
     Dates: start: 20090323, end: 20090324

REACTIONS (4)
  - HALLUCINATION, VISUAL [None]
  - NAUSEA [None]
  - PHOTOPSIA [None]
  - VOMITING [None]
